FAERS Safety Report 9951859 (Version 2)
Quarter: 2014Q1

REPORT INFORMATION
  Report Type: Spontaneous
  Country: JP (occurrence: JP)
  Receive Date: 20140304
  Receipt Date: 20140321
  Transmission Date: 20141002
  Serious: Yes (Hospitalization)
  Sender: FDA-Public Use
  Company Number: PHHY2014JP026129

PATIENT
  Age: 74 Year
  Sex: Female

DRUGS (4)
  1. NEORAL [Suspect]
     Indication: INTERSTITIAL LUNG DISEASE
     Dosage: 150 MG, 100 MG IN THE MORNING AND 50 MG IN THE EARLY EVENING
     Route: 048
  2. NEORAL [Suspect]
     Indication: OFF LABEL USE
     Dosage: 100 MG ,100 MG IN THE MORNING
     Route: 048
  3. NEORAL [Suspect]
     Indication: DERMATITIS EXFOLIATIVE
     Dosage: 150 MG, 100 IN THE MORNING AND 50 MG IN THE EARLY EVENING
     Route: 048
  4. PREDONINE [Concomitant]
     Indication: INTERSTITIAL LUNG DISEASE
     Dosage: 40MG, FOR FOUR WEEK

REACTIONS (1)
  - Autoimmune haemolytic anaemia [Recovering/Resolving]
